FAERS Safety Report 8677057 (Version 3)
Quarter: 2013Q1

REPORT INFORMATION
  Report Type: Report from Study
  Country: CA (occurrence: CA)
  Receive Date: 20120723
  Receipt Date: 20130226
  Transmission Date: 20140127
  Serious: Yes (Other)
  Sender: FDA-Public Use
  Company Number: CA-JNJFOC-20120707497

PATIENT
  Age: 31 None
  Sex: Male
  Weight: 83 kg

DRUGS (4)
  1. REMICADE [Suspect]
     Indication: COLITIS ULCERATIVE
     Route: 042
     Dates: start: 201205
  2. PREDNISONE [Concomitant]
     Route: 065
  3. PREDNISONE [Concomitant]
     Route: 065
  4. IRON [Concomitant]
     Indication: NUTRITIONAL SUPPLEMENTATION
     Route: 065

REACTIONS (5)
  - Haematochezia [Recovering/Resolving]
  - Gastrointestinal pain [Not Recovered/Not Resolved]
  - Frequent bowel movements [Not Recovered/Not Resolved]
  - Lethargy [Not Recovered/Not Resolved]
  - Drug ineffective [Not Recovered/Not Resolved]
